FAERS Safety Report 7490176-4 (Version None)
Quarter: 2011Q2

REPORT INFORMATION
  Report Type: 
  Country: None (occurrence: None)
  Receive Date: 20110519
  Receipt Date: 20110421
  Transmission Date: 20111010
  Serious: Yes (Other)
  Sender: FDA-Public Use
  Company Number: US-BAYER-201034575NA

PATIENT
  Age: 26 Year
  Sex: Female
  Weight: 89.342 kg

DRUGS (10)
  1. PREVACID [Concomitant]
  2. METFORMIN HCL [Concomitant]
  3. YASMIN [Suspect]
     Indication: CONTRACEPTION
     Route: 048
     Dates: start: 20060701, end: 20080601
  4. DROSPIRENONE AND ETHINYL ESTRADIOL [Suspect]
     Indication: CONTRACEPTION
     Route: 048
     Dates: start: 20080701, end: 20090801
  5. IBUPROFEN [Concomitant]
  6. ALDACTONE [Concomitant]
  7. HYDROCODONE BITARTRATE AND ACETAMINOPHEN [Concomitant]
  8. POTASSIUM CITRATE [Concomitant]
  9. GLUCOPHAGE [Concomitant]
  10. LIPITOR [Concomitant]

REACTIONS (4)
  - CHOLECYSTITIS CHRONIC [None]
  - ABDOMINAL PAIN UPPER [None]
  - CHOLESTEROSIS [None]
  - GALLBLADDER INJURY [None]
